FAERS Safety Report 22655111 (Version 1)
Quarter: 2023Q2

REPORT INFORMATION
  Report Type: Spontaneous
  Country: US (occurrence: None)
  Receive Date: 20230628
  Receipt Date: 20230628
  Transmission Date: 20230722
  Serious: Yes (Hospitalization, Disabling)
  Sender: FDA-Public Use
  Company Number: None

PATIENT
  Age: 57 Year
  Sex: Female
  Weight: 72 kg

DRUGS (1)
  1. OZEMPIC [Suspect]
     Active Substance: SEMAGLUTIDE
     Indication: Diabetes mellitus
     Dates: start: 20220517, end: 20220525

REACTIONS (14)
  - Visual impairment [None]
  - Vomiting [None]
  - Skin ulcer [None]
  - Diarrhoea [None]
  - Culture positive [None]
  - Enterobacter infection [None]
  - Skin discolouration [None]
  - Eye swelling [None]
  - Loss of personal independence in daily activities [None]
  - Dysgraphia [None]
  - Feeling abnormal [None]
  - Peripheral swelling [None]
  - Tongue discolouration [None]
  - Eye disorder [None]

NARRATIVE: CASE EVENT DATE: 20220520
